FAERS Safety Report 21217897 (Version 1)
Quarter: 2022Q3

REPORT INFORMATION
  Report Type: Spontaneous
  Country: US (occurrence: None)
  Receive Date: 20220816
  Receipt Date: 20220816
  Transmission Date: 20221027
  Serious: No
  Sender: FDA-Public Use
  Company Number: US-ROCHE-3049786

PATIENT
  Sex: Female
  Weight: 59.928 kg

DRUGS (1)
  1. ALECENSA [Suspect]
     Active Substance: ALECTINIB HYDROCHLORIDE
     Indication: Neoplasm malignant
     Dosage: TAKE 4 CAPSULE BY MOUTH
     Route: 048
     Dates: start: 20220208

REACTIONS (1)
  - Liver function test increased [Unknown]
